FAERS Safety Report 8939128 (Version 1)
Quarter: 2012Q4

REPORT INFORMATION
  Report Type: 
  Country: DE (occurrence: DE)
  Receive Date: 20121203
  Receipt Date: 20121203
  Transmission Date: 20130627
  Serious: Yes (Other)
  Sender: FDA-Public Use
  Company Number: DE-SANOFI-AVENTIS-2012SA087268

PATIENT
  Age: 44 Year
  Sex: Female

DRUGS (4)
  1. FERRLECIT [Suspect]
     Indication: DRUG USE FOR UNKNOWN INDICATION
     Dosage: form- ampoule
     Route: 065
     Dates: start: 20120418, end: 20120418
  2. VITAMINS NOS [Concomitant]
  3. DIMENHYDRINATE [Concomitant]
  4. GAVISCON ADVANCE [Concomitant]
     Indication: GASTROOESOPHAGEAL REFLUX

REACTIONS (4)
  - Premature delivery [Unknown]
  - Exposure during pregnancy [Unknown]
  - Anaphylactic reaction [Recovered/Resolved]
  - Angioedema [Recovered/Resolved]
